FAERS Safety Report 10073088 (Version 1)
Quarter: 2014Q2

REPORT INFORMATION
  Report Type: Report from Study
  Country: US (occurrence: US)
  Receive Date: 20140411
  Receipt Date: 20140411
  Transmission Date: 20141212
  Serious: Yes (Other)
  Sender: FDA-Public Use
  Company Number: US-UCBSA-117807

PATIENT
  Age: 53 Year
  Sex: Female
  Weight: 97 kg

DRUGS (12)
  1. CIMZIA [Suspect]
     Indication: CROHN^S DISEASE
     Route: 058
     Dates: start: 20100308
  2. VITAMIN B12 [Concomitant]
     Route: 030
     Dates: start: 2007
  3. ESTRADIOL [Concomitant]
     Indication: OESTROGEN REPLACEMENT THERAPY
     Dates: start: 2003
  4. FLAGYL [Concomitant]
     Indication: CROHN^S DISEASE
     Dates: start: 201310
  5. LORAZEPAM [Concomitant]
     Indication: ANXIETY
     Dates: start: 2005
  6. PAROXETINE [Concomitant]
     Indication: DEPRESSION
     Dates: start: 2005
  7. RANITIDINE [Concomitant]
     Indication: GASTROOESOPHAGEAL REFLUX DISEASE
     Dates: start: 2004
  8. VENTOLIN [Concomitant]
     Indication: UPPER RESPIRATORY TRACT INFECTION
     Dosage: 90MCG/ACT 2 PUFFS QID PRN
     Dates: start: 2004
  9. ZOLPIDEM [Concomitant]
     Indication: INSOMNIA
     Dosage: AT BEDTIME
     Dates: start: 2005
  10. CLARITIN D [Concomitant]
     Indication: SEASONAL ALLERGY
     Dosage: 5-120 MG DAILY
     Route: 048
     Dates: start: 2012
  11. NAPROXEN [Concomitant]
     Indication: CROHN^S DISEASE
  12. AZATHIOPRIN [Concomitant]
     Dates: start: 201310, end: 201312

REACTIONS (1)
  - Oral candidiasis [Not Recovered/Not Resolved]
